FAERS Safety Report 15797390 (Version 1)
Quarter: 2019Q1

REPORT INFORMATION
  Report Type: Spontaneous
  Country: US (occurrence: US)
  Receive Date: 20190108
  Receipt Date: 20190108
  Transmission Date: 20190417
  Serious: No
  Sender: FDA-Public Use
  Company Number: US-PFIZER INC-2019005219

PATIENT
  Sex: Male

DRUGS (4)
  1. LYRICA [Suspect]
     Active Substance: PREGABALIN
     Indication: CERVICAL VERTEBRAL FRACTURE
  2. LYRICA [Suspect]
     Active Substance: PREGABALIN
     Indication: CLAVICLE FRACTURE
  3. LYRICA [Suspect]
     Active Substance: PREGABALIN
     Indication: SPINAL DEFORMITY
  4. LYRICA [Suspect]
     Active Substance: PREGABALIN
     Indication: SPINAL FRACTURE

REACTIONS (1)
  - Gait inability [Unknown]
